FAERS Safety Report 8883944 (Version 1)
Quarter: 2012Q4

REPORT INFORMATION
  Report Type: 
  Country: US (occurrence: US)
  Receive Date: 20121102
  Receipt Date: 20121102
  Transmission Date: 20130627
  Serious: Yes (Other)
  Sender: FDA-Public Use
  Company Number: US-PFIZER INC-2012271933

PATIENT
  Age: 70 Year
  Sex: Female

DRUGS (15)
  1. LYRICA [Suspect]
     Dosage: 75 mg, 2x/day
     Route: 048
  2. APIDRA SOLOSTAR [Concomitant]
     Dosage: 15 unit three times a day as needed
     Route: 058
  3. ASPIRIN [Concomitant]
     Dosage: 81 mg, 1x/day
     Route: 048
  4. CALCIUM 600 [Concomitant]
     Dosage: 600 mg, 1x/day
     Route: 048
  5. CALCIUM CARBONATE/COLECALCIFEROL [Concomitant]
     Dosage: 600 mg(1,500mg)-400 unit
  6. FEXOFENADINE [Concomitant]
     Dosage: 180 mg, once a day as needed
     Route: 048
  7. LANTUS [Concomitant]
     Dosage: 42 IU, 1x/day
     Route: 058
  8. MILK OF MAGNESIA [Concomitant]
     Dosage: 30 ml, as needed
     Route: 048
  9. MULTI-DAY [Concomitant]
     Dosage: 1 DF, 1x/day
     Route: 048
  10. PAXIL CR [Concomitant]
     Dosage: 25 mg, 1x/day
     Route: 048
  11. PROTONIX [Concomitant]
     Dosage: 40 mg, 2x/day
     Route: 048
  12. ULTRAM [Concomitant]
     Indication: PAIN
     Dosage: 1-2 tablet every six hours as needed
  13. VESICARE [Concomitant]
     Dosage: 10 mg, 1x/day
     Route: 048
  14. VICTOZA [Concomitant]
     Dosage: 1.2 mg, 1x/day
     Route: 058
  15. ZETIA [Concomitant]
     Dosage: 10 mg, 1x/day
     Route: 048

REACTIONS (2)
  - Arthropathy [Unknown]
  - Eye disorder [Unknown]
